FAERS Safety Report 7256356-8 (Version None)
Quarter: 2011Q1

REPORT INFORMATION
  Report Type: 
  Country: None (occurrence: None)
  Receive Date: 20110129
  Receipt Date: 20100628
  Transmission Date: 20110831
  Serious: No
  Sender: FDA-Public Use
  Company Number: US-ABBOTT-10P-163-0654421-00

PATIENT
  Sex: Male

DRUGS (5)
  1. CRESTOR [Concomitant]
     Indication: BLOOD CHOLESTEROL INCREASED
  2. HUMIRA [Suspect]
     Route: 058
     Dates: start: 20100201
  3. HUMIRA [Suspect]
     Indication: ANKYLOSING SPONDYLITIS
     Route: 058
     Dates: start: 20080101, end: 20090101
  4. AZOR [Concomitant]
     Indication: HYPERTENSION
     Dosage: 10/40
  5. HUMIRA [Suspect]
     Route: 058
     Dates: start: 20090101, end: 20100201

REACTIONS (3)
  - COUGH [None]
  - PAIN [None]
  - NASAL CONGESTION [None]
